FAERS Safety Report 12784528 (Version 3)
Quarter: 2016Q4

REPORT INFORMATION
  Report Type: Spontaneous
  Country: IT (occurrence: IT)
  Receive Date: 20160927
  Receipt Date: 20161130
  Transmission Date: 20170207
  Serious: Yes (Hospitalization, Other)
  Sender: FDA-Public Use
  Company Number: IT-009507513-1609ITA012592

PATIENT
  Age: 72 Year
  Sex: Male

DRUGS (2)
  1. JANUVIA [Suspect]
     Active Substance: SITAGLIPTIN PHOSPHATE
     Indication: TYPE 2 DIABETES MELLITUS
     Dosage: 100MG TABLET,1 DOSE UNIT, ORAL, DAILY
     Route: 048
     Dates: start: 201010, end: 201010
  2. JANUMET [Suspect]
     Active Substance: METFORMIN HYDROCHLORIDE\SITAGLIPTIN PHOSPHATE
     Indication: TYPE 2 DIABETES MELLITUS
     Dosage: 50MG+100MG,1 TABLET TWICE DAILY,ORAL
     Route: 048
     Dates: start: 201010, end: 20130430

REACTIONS (4)
  - Pancreatic enzymes increased [Recovering/Resolving]
  - Constipation [Unknown]
  - Dyspepsia [Unknown]
  - Pancreatitis chronic [Not Recovered/Not Resolved]

NARRATIVE: CASE EVENT DATE: 20130430
